FAERS Safety Report 19928628 (Version 3)
Quarter: 2021Q4

REPORT INFORMATION
  Report Type: Spontaneous
  Country: US (occurrence: US)
  Receive Date: 20211007
  Receipt Date: 20211109
  Transmission Date: 20220303
  Serious: No
  Sender: FDA-Public Use
  Company Number: US-NOVARTISTESTPH-NVSC2021US228934

PATIENT
  Sex: Female
  Weight: 64.853 kg

DRUGS (1)
  1. COMBIPATCH [Suspect]
     Active Substance: ESTRADIOL\NORETHINDRONE ACETATE
     Indication: Artificial menopause
     Dosage: 50/140 UG
     Route: 062
     Dates: start: 202102

REACTIONS (5)
  - Application site exfoliation [Recovered/Resolved]
  - Application site injury [Recovered/Resolved]
  - Application site pruritus [Recovered/Resolved]
  - Application site discomfort [Recovered/Resolved]
  - Application site erythema [Recovered/Resolved]

NARRATIVE: CASE EVENT DATE: 20210101
